FAERS Safety Report 23807679 (Version 1)
Quarter: 2024Q2

REPORT INFORMATION
  Report Type: Spontaneous
  Country: US (occurrence: US)
  Receive Date: 20240502
  Receipt Date: 20240502
  Transmission Date: 20240716
  Serious: No
  Sender: FDA-Public Use
  Company Number: US-PADAGIS-2024PAD00662

PATIENT

DRUGS (5)
  1. EVAMIST [Suspect]
     Active Substance: ESTRADIOL
     Indication: Product used for unknown indication
     Dosage: UNK(ONE TO THREE SPRAYS OF EVAMIST DAILY)
     Route: 065
  2. EVAMIST [Suspect]
     Active Substance: ESTRADIOL
     Dosage: UNK(ONE SPRAY FOR 3 DAYS SO FAR AT NIGHT)
     Route: 065
  3. PROGESTERONE [Concomitant]
     Active Substance: PROGESTERONE
     Indication: Product used for unknown indication
     Dosage: UNK
     Route: 065
  4. ESTRADIOL [Concomitant]
     Active Substance: ESTRADIOL
     Indication: Product used for unknown indication
     Dosage: 1 MG TWICE WEEKLY  PATCH
     Route: 065
  5. ESTRADIOL [Concomitant]
     Active Substance: ESTRADIOL
     Dosage: PILLS
     Route: 065

REACTIONS (5)
  - Dysmenorrhoea [Unknown]
  - Menstrual disorder [Unknown]
  - Intermenstrual bleeding [Unknown]
  - Poor quality sleep [Unknown]
  - Product use issue [Unknown]
